FAERS Safety Report 9469332 (Version 3)
Quarter: 2013Q3

REPORT INFORMATION
  Report Type: Spontaneous
  Country: IT (occurrence: IT)
  Receive Date: 20130821
  Receipt Date: 20130829
  Transmission Date: 20140515
  Serious: Yes (Hospitalization)
  Sender: FDA-Public Use
  Company Number: IT-ROCHE-1264078

PATIENT
  Age: 66 Year
  Sex: Male

DRUGS (4)
  1. COPEGUS [Suspect]
     Indication: CHRONIC HEPATITIS C
     Route: 048
     Dates: start: 20130522, end: 20130809
  2. COPEGUS [Suspect]
     Route: 065
  3. INTERFERON ALFA-2A [Suspect]
     Indication: CHRONIC HEPATITIS C
     Route: 058
     Dates: start: 20130522, end: 20130809
  4. TELAPREVIR [Suspect]
     Indication: CHRONIC HEPATITIS C
     Route: 048
     Dates: start: 20130522, end: 20130809

REACTIONS (4)
  - Rash [Recovering/Resolving]
  - Q fever [Recovering/Resolving]
  - Eosinophilia [Recovering/Resolving]
  - Asthenia [Recovering/Resolving]
